FAERS Safety Report 25740523 (Version 1)
Quarter: 2025Q3

REPORT INFORMATION
  Report Type: Spontaneous
  Country: EU (occurrence: EU)
  Receive Date: 20250829
  Receipt Date: 20250829
  Transmission Date: 20251020
  Serious: Yes (Life-Threatening, Hospitalization)
  Sender: MYLAN
  Company Number: EU-MYLANLABS-2025M1073956

PATIENT
  Age: 50 Year
  Sex: Male

DRUGS (20)
  1. VERAPAMIL [Suspect]
     Active Substance: VERAPAMIL HYDROCHLORIDE
     Indication: Arterial spasm
  2. VERAPAMIL [Suspect]
     Active Substance: VERAPAMIL HYDROCHLORIDE
     Route: 013
  3. VERAPAMIL [Suspect]
     Active Substance: VERAPAMIL HYDROCHLORIDE
     Route: 013
  4. VERAPAMIL [Suspect]
     Active Substance: VERAPAMIL HYDROCHLORIDE
  5. NITROGLYCERIN [Suspect]
     Active Substance: NITROGLYCERIN
     Indication: Arterial spasm
  6. NITROGLYCERIN [Suspect]
     Active Substance: NITROGLYCERIN
     Route: 013
  7. NITROGLYCERIN [Suspect]
     Active Substance: NITROGLYCERIN
     Route: 013
  8. NITROGLYCERIN [Suspect]
     Active Substance: NITROGLYCERIN
  9. LIDOCAINE [Suspect]
     Active Substance: LIDOCAINE
     Indication: Arterial spasm
  10. LIDOCAINE [Suspect]
     Active Substance: LIDOCAINE
     Route: 065
  11. LIDOCAINE [Suspect]
     Active Substance: LIDOCAINE
     Route: 065
  12. LIDOCAINE [Suspect]
     Active Substance: LIDOCAINE
  13. MIDAZOLAM [Suspect]
     Active Substance: MIDAZOLAM
     Indication: Arterial spasm
  14. MIDAZOLAM [Suspect]
     Active Substance: MIDAZOLAM
     Route: 065
  15. MIDAZOLAM [Suspect]
     Active Substance: MIDAZOLAM
     Route: 065
  16. MIDAZOLAM [Suspect]
     Active Substance: MIDAZOLAM
  17. MORPHINE [Suspect]
     Active Substance: MORPHINE
     Indication: Arterial spasm
  18. MORPHINE [Suspect]
     Active Substance: MORPHINE
     Route: 065
  19. MORPHINE [Suspect]
     Active Substance: MORPHINE
     Route: 065
  20. MORPHINE [Suspect]
     Active Substance: MORPHINE

REACTIONS (1)
  - Drug ineffective [Unknown]
